FAERS Safety Report 8212894-2 (Version None)
Quarter: 2012Q1

REPORT INFORMATION
  Report Type: 
  Country: None (occurrence: None)
  Receive Date: 20120315
  Receipt Date: 20120305
  Transmission Date: 20120608
  Serious: Yes (Congenital Anomaly)
  Sender: FDA-Public Use
  Company Number: FR-PFIZER INC-2012065779

PATIENT
  Sex: Female
  Weight: 4.5 kg

DRUGS (3)
  1. TERCIAN [Suspect]
     Dosage: 25 MG, 1X/DAY
     Route: 064
     Dates: start: 20110101, end: 20111022
  2. EFFEXOR [Suspect]
     Dosage: UNK
     Route: 064
     Dates: start: 20110101, end: 20110101
  3. ATARAX [Suspect]
     Dosage: 25 MG, 1X/DAY
     Route: 064
     Dates: start: 20110101, end: 20111022

REACTIONS (4)
  - MATERNAL EXPOSURE TIMING UNSPECIFIED [None]
  - DYSMORPHISM [None]
  - HYPOTONIA [None]
  - VASCULAR SHUNT [None]
